FAERS Safety Report 4930473-7 (Version None)
Quarter: 2006Q1

REPORT INFORMATION
  Report Type: 
  Country: None (occurrence: None)
  Receive Date: 20060118
  Receipt Date: 20050817
  Transmission Date: 20060701
  Serious: No
  Sender: FDA-Public Use
  Company Number: 2005001606

PATIENT
  Sex: Male

DRUGS (2)
  1. TARCEVA [Suspect]
     Dosage: ORAL
     Route: 048
     Dates: end: 20050621
  2. AVASTIN [Concomitant]

REACTIONS (12)
  - ACNE [None]
  - ALOPECIA [None]
  - ANOREXIA [None]
  - DIARRHOEA [None]
  - FATIGUE [None]
  - HYPOTRICHOSIS [None]
  - RASH PAPULAR [None]
  - RASH PUSTULAR [None]
  - SKIN EXFOLIATION [None]
  - SKIN FRAGILITY [None]
  - SMALL INTESTINE ULCER [None]
  - WEIGHT DECREASED [None]
